FAERS Safety Report 6801759-6 (Version None)
Quarter: 2010Q2

REPORT INFORMATION
  Report Type: 
  Country: None (occurrence: None)
  Receive Date: 20100629
  Receipt Date: 20100624
  Transmission Date: 20101027
  Serious: Yes (Other)
  Sender: FDA-Public Use
  Company Number: ES-ABBOTT-10P-144-0648358-00

PATIENT
  Age: 47 Year
  Sex: Female

DRUGS (12)
  1. HUMIRA [Suspect]
     Indication: PSORIASIS
     Route: 058
     Dates: start: 20080709, end: 20090128
  2. ENANTYUM [Concomitant]
     Indication: DRUG USE FOR UNKNOWN INDICATION
  3. CYMBALTA [Concomitant]
     Indication: DRUG USE FOR UNKNOWN INDICATION
  4. RIVOTRIL 2 [Concomitant]
     Indication: DRUG USE FOR UNKNOWN INDICATION
  5. NOLOTIL [Concomitant]
     Indication: DRUG USE FOR UNKNOWN INDICATION
  6. MYOLASTAN [Concomitant]
     Indication: DRUG USE FOR UNKNOWN INDICATION
  7. LYRICA [Concomitant]
     Indication: DRUG USE FOR UNKNOWN INDICATION
  8. MST [Concomitant]
     Indication: DRUG USE FOR UNKNOWN INDICATION
  9. SEVREDOL [Concomitant]
     Indication: DRUG USE FOR UNKNOWN INDICATION
  10. DEPRAX [Concomitant]
     Indication: DRUG USE FOR UNKNOWN INDICATION
  11. DACORTIN [Concomitant]
     Indication: DRUG USE FOR UNKNOWN INDICATION
  12. REULENOX [Concomitant]
     Indication: DRUG USE FOR UNKNOWN INDICATION

REACTIONS (3)
  - PAIN [None]
  - RENAL NEOPLASM [None]
  - SYSTEMIC LUPUS ERYTHEMATOSUS [None]
